FAERS Safety Report 7125566-2 (Version None)
Quarter: 2010Q4

REPORT INFORMATION
  Report Type: 
  Country: None (occurrence: None)
  Receive Date: 20101129
  Receipt Date: 20040630
  Transmission Date: 20110411
  Serious: Yes (Other)
  Sender: FDA-Public Use
  Company Number: AU-ROCHE-741629

PATIENT

DRUGS (2)
  1. XENICAL [Suspect]
     Dosage: OVERDOSE
     Route: 065
  2. XENICAL [Suspect]
     Route: 065

REACTIONS (2)
  - HYPOTENSION [None]
  - OVERDOSE [None]
